FAERS Safety Report 8811056 (Version 1)
Quarter: 2012Q4

REPORT INFORMATION
  Report Type: Spontaneous
  Country: US (occurrence: None)
  Receive Date: 20120925
  Receipt Date: 20120925
  Transmission Date: 20130627
  Serious: Yes (Other)
  Sender: FDA-Public Use
  Company Number: None

PATIENT
  Age: 82 Year
  Sex: Female
  Weight: 72.7 kg

DRUGS (7)
  1. AXONA [Suspect]
     Route: 048
     Dates: start: 201205
  2. AXONA [Suspect]
     Route: 048
     Dates: start: 20120826
  3. BLOOD PRESSURE MEDICATION [Concomitant]
  4. DOTHIEPIN [Concomitant]
  5. BABY ASPIRIN [Concomitant]
  6. CITRULLINE [Concomitant]
  7. NAMENDA [Concomitant]

REACTIONS (7)
  - Abdominal pain upper [None]
  - Dyspepsia [None]
  - Dizziness [None]
  - Nausea [None]
  - Diarrhoea [None]
  - Dementia Alzheimer^s type [None]
  - Disease progression [None]
